FAERS Safety Report 4513546-2 (Version None)
Quarter: 2004Q4

REPORT INFORMATION
  Report Type: 
  Country: None (occurrence: None)
  Receive Date: 20041130
  Receipt Date: 20040628
  Transmission Date: 20050328
  Serious: Yes (Hospitalization, Other)
  Sender: FDA-Public Use
  Company Number: US-GLAXOSMITHKLINE-A0516258A

PATIENT
  Age: 45 Year
  Sex: Male

DRUGS (6)
  1. WELLBUTRIN [Suspect]
     Indication: ILL-DEFINED DISORDER
     Dosage: 300MG IN THE MORNING
     Route: 048
  2. DILANTIN [Concomitant]
     Dosage: 200MG THREE TIMES PER DAY
  3. TRAZODONE HCL [Concomitant]
     Dosage: 200MG AT NIGHT
  4. ZYPREXA [Concomitant]
     Dosage: 15MG AT NIGHT
  5. ASPIRIN [Concomitant]
     Dosage: 1TAB PER DAY
  6. PLAVIX [Concomitant]
     Dosage: 75MG PER DAY

REACTIONS (1)
  - CONVULSION [None]
